FAERS Safety Report 23616509 (Version 1)
Quarter: 2024Q1

REPORT INFORMATION
  Report Type: Spontaneous
  Country: DE (occurrence: DE)
  Receive Date: 20240311
  Receipt Date: 20240311
  Transmission Date: 20240410
  Serious: Yes (Congenital Anomaly, Other)
  Sender: FDA-Public Use
  Company Number: None

PATIENT
  Sex: Male
  Weight: 4.15 kg

DRUGS (4)
  1. CIMZIA [Suspect]
     Active Substance: CERTOLIZUMAB PEGOL
     Indication: Rheumatoid arthritis
     Dosage: 200 MILLIGRAM, EV 2 WEEKS(QOW)
     Route: 064
  2. BOOSTRIX [Concomitant]
     Active Substance: TETANUS TOXOID, REDUCED DIPHTHERIA TOXOID AND ACELLULAR PERTUSSIS VACCINE, ADSORBED ANTIGENS
     Indication: Immunisation
     Dosage: UNK
     Route: 064
     Dates: start: 20230718, end: 20230718
  3. CLOTRIMAZOLE [Concomitant]
     Active Substance: CLOTRIMAZOLE
     Indication: Vulvovaginal mycotic infection
     Dosage: GW 35 FOR 3 DAYS, SUPPOSITORIES AND CREAM
     Route: 064
     Dates: start: 2023, end: 2023
  4. PEVARYL [ECONAZOLE NITRATE] [Concomitant]
     Indication: Tinea versicolour
     Dosage: 100 MILLIGRAM PER DAY, SHAMPOO, SHOWER GEL
     Route: 064
     Dates: start: 2023, end: 2023

REACTIONS (3)
  - Neonatal infection [Recovered/Resolved]
  - Talipes [Unknown]
  - Maternal exposure during pregnancy [Unknown]

NARRATIVE: CASE EVENT DATE: 20230501
